FAERS Safety Report 23975157 (Version 2)
Quarter: 2024Q2

REPORT INFORMATION
  Report Type: Spontaneous
  Country: US (occurrence: US)
  Receive Date: 20240614
  Receipt Date: 20240617
  Transmission Date: 20240715
  Serious: No
  Sender: FDA-Public Use
  Company Number: US-TEVA-VS-3206416

PATIENT

DRUGS (1)
  1. CLONIDINE HYDROCHLORIDE [Suspect]
     Active Substance: CLONIDINE HYDROCHLORIDE
     Indication: Product used for unknown indication
     Dosage: 0.1 MG/24HR
     Route: 065

REACTIONS (4)
  - Product use issue [Unknown]
  - Wrong dosage formulation [Unknown]
  - Wrong technique in product usage process [Unknown]
  - Hypotension [Unknown]
